FAERS Safety Report 16953187 (Version 1)
Quarter: 2019Q4

REPORT INFORMATION
  Report Type: Spontaneous
  Country: ES (occurrence: ES)
  Receive Date: 20191023
  Receipt Date: 20191023
  Transmission Date: 20200122
  Serious: Yes (Other)
  Sender: FDA-Public Use
  Company Number: ES-ASTRAZENECA-2019SF50398

PATIENT
  Age: 40 Year
  Sex: Female

DRUGS (1)
  1. OLAPARIB. [Suspect]
     Active Substance: OLAPARIB
     Indication: OVARIAN EPITHELIAL CANCER RECURRENT
     Route: 048
     Dates: start: 20151113, end: 201604

REACTIONS (4)
  - Nausea [Recovered/Resolved]
  - Haemoglobin abnormal [Recovered/Resolved]
  - Pneumonitis [Recovered/Resolved]
  - Lymphopenia [Recovered/Resolved]

NARRATIVE: CASE EVENT DATE: 2015
